FAERS Safety Report 5421660-2 (Version None)
Quarter: 2007Q3

REPORT INFORMATION
  Report Type: 
  Country: None (occurrence: None)
  Receive Date: 20070821
  Receipt Date: 20070809
  Transmission Date: 20080115
  Serious: Yes (Hospitalization)
  Sender: FDA-Public Use
  Company Number: PE-PFIZER INC-2007062971

PATIENT
  Sex: Male
  Weight: 80 kg

DRUGS (2)
  1. SU-011,248 [Suspect]
     Indication: RENAL CELL CARCINOMA STAGE UNSPECIFIED
     Route: 048
  2. LEVOTHYROXINE SODIUM [Concomitant]
     Route: 048

REACTIONS (1)
  - GENERALISED OEDEMA [None]
